FAERS Safety Report 16980073 (Version 2)
Quarter: 2019Q4

REPORT INFORMATION
  Report Type: Spontaneous
  Country: US (occurrence: US)
  Receive Date: 20191031
  Receipt Date: 20191106
  Transmission Date: 20200122
  Serious: Yes (Hospitalization, Other)
  Sender: FDA-Public Use
  Company Number: US-ABBVIE-19K-163-2979868-00

PATIENT
  Sex: Female

DRUGS (1)
  1. CREON [Suspect]
     Active Substance: PANCRELIPASE AMYLASE\PANCRELIPASE LIPASE\PANCRELIPASE PROTEASE
     Indication: PRODUCT USED FOR UNKNOWN INDICATION
     Route: 048

REACTIONS (10)
  - Intestinal obstruction [Unknown]
  - Mental fatigue [Unknown]
  - Vomiting [Unknown]
  - Hip arthroplasty [Unknown]
  - Pancreatitis [Unknown]
  - Insomnia [Unknown]
  - Feeling abnormal [Unknown]
  - Gastric disorder [Unknown]
  - Pancreatic carcinoma [Unknown]
  - Fatigue [Unknown]

NARRATIVE: CASE EVENT DATE: 2019
